FAERS Safety Report 4297636-8 (Version None)
Quarter: 2004Q1

REPORT INFORMATION
  Report Type: 
  Country: None (occurrence: None)
  Receive Date: 20040213
  Receipt Date: 20040114
  Transmission Date: 20041129
  Serious: Yes (Other)
  Sender: FDA-Public Use
  Company Number: 2004198146US

PATIENT

DRUGS (1)
  1. CELEBREX (CELOCOXIB) CAPSULE [Suspect]
     Indication: RHEUMATOID ARTHRITIS

REACTIONS (1)
  - BONE MARROW DEPRESSION [None]
